FAERS Safety Report 7428808-9 (Version None)
Quarter: 2011Q2

REPORT INFORMATION
  Report Type: 
  Country: None (occurrence: None)
  Receive Date: 20110421
  Receipt Date: 20110419
  Transmission Date: 20111010
  Serious: Yes (Other)
  Sender: FDA-Public Use
  Company Number: FR-BRISTOL-MYERS SQUIBB COMPANY-15648629

PATIENT
  Age: 16 Year
  Sex: Male

DRUGS (1)
  1. ABILIFY [Suspect]
     Indication: SCHIZOPHRENIA
     Dosage: 1 DF:15MG AND 20MG STARTED AS 5MG,THEN INCRESAED TO 10MG/DAY,15MG(SEP10),THEN TO 10MGBID ON 24SEP10
     Route: 048
     Dates: start: 20100815

REACTIONS (3)
  - HOT FLUSH [None]
  - CHILLS [None]
  - HYPERHIDROSIS [None]
